FAERS Safety Report 20731591 (Version 2)
Quarter: 2022Q2

REPORT INFORMATION
  Report Type: Spontaneous
  Country: US (occurrence: US)
  Receive Date: 20220420
  Receipt Date: 20220507
  Transmission Date: 20220721
  Serious: No
  Sender: FDA-Public Use
  Company Number: US-SA-SAC20220419000131

PATIENT
  Age: 36 Year
  Sex: Male

DRUGS (3)
  1. DUPIXENT [Suspect]
     Active Substance: DUPILUMAB
     Indication: Eosinophilia
     Dosage: 300 MG
     Route: 058
     Dates: start: 20220324, end: 20220330
  2. DUPIXENT [Suspect]
     Active Substance: DUPILUMAB
     Indication: Sinusitis
  3. DUPIXENT [Suspect]
     Active Substance: DUPILUMAB
     Indication: Nasal polyps

REACTIONS (9)
  - Rhinorrhoea [Unknown]
  - Lacrimation increased [Unknown]
  - Eye pruritus [Unknown]
  - Nasal congestion [Recovered/Resolved]
  - Paranasal sinus discomfort [Unknown]
  - Malaise [Unknown]
  - Fatigue [Recovered/Resolved]
  - Eosinophil count increased [Unknown]
  - Product use in unapproved indication [Unknown]

NARRATIVE: CASE EVENT DATE: 20220101
